FAERS Safety Report 22060415 (Version 1)
Quarter: 2023Q1

REPORT INFORMATION
  Report Type: Spontaneous
  Country: CN (occurrence: CN)
  Receive Date: 20230303
  Receipt Date: 20230303
  Transmission Date: 20230417
  Serious: Yes (Hospitalization, Other)
  Sender: FDA-Public Use
  Company Number: CN-BAYER-2023A022689

PATIENT
  Age: 78 Year
  Sex: Female
  Weight: 45 kg

DRUGS (2)
  1. GLUCOBAY [Suspect]
     Active Substance: ACARBOSE
     Indication: Type 2 diabetes mellitus
     Dosage: 50 MG, TID
     Route: 048
     Dates: start: 20220107, end: 20230102
  2. METFORMIN [Suspect]
     Active Substance: METFORMIN HYDROCHLORIDE
     Indication: Type 2 diabetes mellitus
     Dosage: 500 MG, BID
     Route: 048
     Dates: start: 20220107, end: 20230102

REACTIONS (4)
  - Acute myocardial infarction [None]
  - Cardiogenic shock [None]
  - Chest pain [None]
  - Drug-induced liver injury [Recovering/Resolving]

NARRATIVE: CASE EVENT DATE: 20230102
